FAERS Safety Report 7268017-X (Version None)
Quarter: 2010Q4

REPORT INFORMATION
  Report Type: 
  Country: None (occurrence: None)
  Receive Date: 20101206
  Receipt Date: 20101110
  Transmission Date: 20110411
  Serious: No
  Sender: FDA-Public Use
  Company Number: 2010SP059529

PATIENT
  Age: 41 Year
  Sex: Female

DRUGS (3)
  1. SAPHRIS [Suspect]
     Indication: BIPOLAR DISORDER
     Dosage: 10 MG; BID; SL
     Route: 060
     Dates: start: 20101101
  2. SAPHRIS [Suspect]
     Indication: BIPOLAR I DISORDER
     Dosage: 10 MG; BID; SL
     Route: 060
     Dates: start: 20101101
  3. CLOZAPINE [Concomitant]

REACTIONS (1)
  - OEDEMA PERIPHERAL [None]
